FAERS Safety Report 25114508 (Version 2)
Quarter: 2025Q3

REPORT INFORMATION
  Report Type: Report from Study
  Country: US (occurrence: US)
  Receive Date: 20250324
  Receipt Date: 20250809
  Transmission Date: 20251021
  Serious: Yes (Death, Hospitalization, Other)
  Sender: ALEXION PHARMACEUTICALS
  Company Number: 202503USA004957US

PATIENT
  Age: 62 Year
  Sex: Male

DRUGS (1)
  1. OLAPARIB [Suspect]
     Active Substance: OLAPARIB
     Indication: Prostate cancer
     Dosage: 300 MILLIGRAM, BID
     Dates: start: 20250115, end: 20250308

REACTIONS (5)
  - Death [Fatal]
  - Pneumonitis [Unknown]
  - Sepsis [Unknown]
  - Respiratory failure [Unknown]
  - Infection [Unknown]

NARRATIVE: CASE EVENT DATE: 20250308
